FAERS Safety Report 12269482 (Version 1)
Quarter: 2016Q2

REPORT INFORMATION
  Report Type: Spontaneous
  Country: US (occurrence: US)
  Receive Date: 20160414
  Receipt Date: 20160414
  Transmission Date: 20160815
  Serious: Yes (Other)
  Sender: FDA-Public Use
  Company Number: US-BAYER-2016-066383

PATIENT

DRUGS (21)
  1. NOVOLOG [Concomitant]
     Active Substance: INSULIN ASPART
  2. GLYCERIN. [Concomitant]
     Active Substance: GLYCERIN
  3. CITALOPRAM HYDROBROMIDE. [Concomitant]
     Active Substance: CITALOPRAM HYDROBROMIDE
     Dosage: UNK, UNK
  4. BAYER GENUINE ASPIRIN [Suspect]
     Active Substance: ASPIRIN
  5. LYRICA [Concomitant]
     Active Substance: PREGABALIN
     Dosage: 75 MG, TID
     Route: 048
  6. SPIRIVA [Concomitant]
     Active Substance: TIOTROPIUM BROMIDE MONOHYDRATE
  7. GLUCOSE [Concomitant]
     Active Substance: DEXTROSE
  8. SYMBICORT [Concomitant]
     Active Substance: BUDESONIDE\FORMOTEROL FUMARATE DIHYDRATE
  9. LORAZEPAM. [Concomitant]
     Active Substance: LORAZEPAM
  10. FAMOTIDINE. [Concomitant]
     Active Substance: FAMOTIDINE
  11. ISOSORBIDE DINITRATE. [Concomitant]
     Active Substance: ISOSORBIDE DINITRATE
  12. MIRTAZAPINE. [Concomitant]
     Active Substance: MIRTAZAPINE
  13. KETOCONAZOLE. [Concomitant]
     Active Substance: KETOCONAZOLE
  14. LANTUS [Concomitant]
     Active Substance: INSULIN GLARGINE
  15. SIMVASTATIN. [Concomitant]
     Active Substance: SIMVASTATIN
  16. METOPROLOL SUCCINATE. [Concomitant]
     Active Substance: METOPROLOL SUCCINATE
  17. ACETAMINOPHEN\HYDROCODONE BITARTRATE [Concomitant]
     Active Substance: ACETAMINOPHEN\HYDROCODONE BITARTRATE
  18. ALBUTEROL SULFATE. [Concomitant]
     Active Substance: ALBUTEROL SULFATE
  19. LOSARTAN POTASSIUM. [Concomitant]
     Active Substance: LOSARTAN POTASSIUM
  20. FUROSEMIDE. [Concomitant]
     Active Substance: FUROSEMIDE
  21. ALLOPURINOL. [Concomitant]
     Active Substance: ALLOPURINOL

REACTIONS (2)
  - Haemorrhage [None]
  - Drug hypersensitivity [None]
